FAERS Safety Report 15626222 (Version 1)
Quarter: 2018Q4

REPORT INFORMATION
  Report Type: Spontaneous
  Country: US (occurrence: US)
  Receive Date: 20181116
  Receipt Date: 20181116
  Transmission Date: 20190205
  Serious: Yes (Life-Threatening, Disabling)
  Sender: FDA-Public Use
  Company Number: None

PATIENT
  Age: 35 Month
  Sex: Female
  Weight: 16.2 kg

DRUGS (1)
  1. VIGABATRIN FOR ORAL SOLUTION, USP [Suspect]
     Active Substance: VIGABATRIN
     Indication: EPILEPSY
     Dosage: ?          QUANTITY:2 PACKETS;?
     Route: 048

REACTIONS (5)
  - Aggression [None]
  - Therapy cessation [None]
  - Seizure [None]
  - Insomnia [None]
  - Insurance issue [None]

NARRATIVE: CASE EVENT DATE: 20181025
